FAERS Safety Report 15578521 (Version 2)
Quarter: 2018Q4

REPORT INFORMATION
  Report Type: Spontaneous
  Country: US (occurrence: US)
  Receive Date: 20181102
  Receipt Date: 20181113
  Transmission Date: 20190205
  Serious: Yes (Hospitalization)
  Sender: FDA-Public Use
  Company Number: US-VERTEX PHARMACEUTICALS-2018-007921

PATIENT
  Age: 35 Year
  Sex: Male

DRUGS (21)
  1. QUETIAPINE. [Concomitant]
     Active Substance: QUETIAPINE
  2. VANCOMYCIN [Concomitant]
     Active Substance: VANCOMYCIN
  3. FLUTICASONE. [Concomitant]
     Active Substance: FLUTICASONE
  4. VENLAFAXINE [Concomitant]
     Active Substance: VENLAFAXINE HYDROCHLORIDE
  5. MIRTAZAPINE. [Concomitant]
     Active Substance: MIRTAZAPINE
  6. OMEPRAZOLE. [Concomitant]
     Active Substance: OMEPRAZOLE
  7. HYDROMORPHONE [Concomitant]
     Active Substance: HYDROMORPHONE
  8. PROMETHAZINE [Concomitant]
     Active Substance: PROMETHAZINE\PROMETHAZINE HYDROCHLORIDE
  9. DIAZEPAM. [Concomitant]
     Active Substance: DIAZEPAM
  10. CAYSTON [Concomitant]
     Active Substance: AZTREONAM
  11. TRIMETHOPRIM SULFAMETHOXAZOLE [Concomitant]
     Active Substance: SULFAMETHOXAZOLE\TRIMETHOPRIM
  12. OXYCODONE/APAP                     /00867901/ [Concomitant]
     Active Substance: ACETAMINOPHEN\OXYCODONE HYDROCHLORIDE
  13. SYMDEKO [Suspect]
     Active Substance: IVACAFTOR\TEZACAFTOR
     Indication: CYSTIC FIBROSIS
     Dosage: 100 MG TEZACAFTOR/150 MG IVACAFTOR AM; 150 MG IVACAFTOR PM
     Route: 048
     Dates: start: 20180821
  14. ALPRAZOLAM. [Concomitant]
     Active Substance: ALPRAZOLAM
  15. CIPROFLOXACIN. [Concomitant]
     Active Substance: CIPROFLOXACIN
  16. TOBRAMYCIN. [Concomitant]
     Active Substance: TOBRAMYCIN
  17. BUSPIRONE [Concomitant]
     Active Substance: BUSPIRONE HYDROCHLORIDE
  18. AZITHROMYCIN ANHYDROUS. [Concomitant]
     Active Substance: AZITHROMYCIN ANHYDROUS
  19. TRAMADOL. [Concomitant]
     Active Substance: TRAMADOL
  20. PULMOZYME [Concomitant]
     Active Substance: DORNASE ALFA
  21. FEROSUL [Concomitant]

REACTIONS (1)
  - Cystic fibrosis respiratory infection suppression [Unknown]

NARRATIVE: CASE EVENT DATE: 201810
